FAERS Safety Report 5788933-5 (Version None)
Quarter: 2008Q2

REPORT INFORMATION
  Report Type: 
  Country: None (occurrence: None)
  Receive Date: 20080625
  Receipt Date: 20080625
  Transmission Date: 20081010
  Serious: Yes (Hospitalization)
  Sender: FDA-Public Use
  Company Number: None

PATIENT
  Age: 32 Year
  Sex: Female
  Weight: 42.1845 kg

DRUGS (1)
  1. UNISOM [Suspect]
     Indication: INSOMNIA
     Dosage: 2 MELTAWAY TABS 1 X BEFORE BED DENTAL
     Route: 004
     Dates: start: 20080623, end: 20080623

REACTIONS (8)
  - ANXIETY [None]
  - DYSPHAGIA [None]
  - HAND DEFORMITY [None]
  - HYPOAESTHESIA [None]
  - MUSCULOSKELETAL STIFFNESS [None]
  - PANIC REACTION [None]
  - PARAESTHESIA ORAL [None]
  - THROAT TIGHTNESS [None]
